FAERS Safety Report 6148125-7 (Version None)
Quarter: 2009Q2

REPORT INFORMATION
  Report Type: 
  Country: None (occurrence: None)
  Receive Date: 20090408
  Receipt Date: 20090406
  Transmission Date: 20091009
  Serious: No
  Sender: FDA-Public Use
  Company Number: US-B.I. PHARMACEUTICALS,INC./RIDGEFIELD-2009-BP-03119BP

PATIENT
  Sex: Female

DRUGS (10)
  1. SPIRIVA [Suspect]
     Indication: BRONCHITIS
     Dosage: 18MCG
  2. SPIRIVA [Suspect]
     Indication: UPPER RESPIRATORY TRACT INFECTION
  3. SPIRIVA [Suspect]
     Indication: PULMONARY CONGESTION
  4. ATENOLOL [Concomitant]
  5. ISORBID [Concomitant]
  6. FISH OIL [Concomitant]
  7. MULTIVITAMIN [Concomitant]
  8. NEXIUM [Concomitant]
  9. SYNTHROID [Concomitant]
  10. VYTORIN [Concomitant]

REACTIONS (1)
  - GLAUCOMA [None]
